FAERS Safety Report 7289957-1 (Version None)
Quarter: 2011Q1

REPORT INFORMATION
  Report Type: 
  Country: None (occurrence: None)
  Receive Date: 20110214
  Receipt Date: 20110202
  Transmission Date: 20110831
  Serious: Yes (Other)
  Sender: FDA-Public Use
  Company Number: ES-ELI_LILLY_AND_COMPANY-ES201012000442

PATIENT
  Sex: Female
  Weight: 78 kg

DRUGS (5)
  1. DOGMATIL [Concomitant]
     Indication: DIZZINESS
     Dosage: UNK, DAILY (1/D)
     Route: 048
     Dates: start: 20101122, end: 20101123
  2. OPIREN [Concomitant]
     Indication: HIATUS HERNIA
     Dosage: 30 MG, DAILY (1/D)
     Route: 048
  3. PREVENCOR [Concomitant]
     Indication: HYPERCHOLESTEROLAEMIA
     Dosage: 10 MG, DAILY (1/D)
     Route: 048
  4. ACTOS [Concomitant]
     Indication: DIABETES MELLITUS
     Dosage: 15 MG, DAILY (1/D)
     Route: 048
     Dates: start: 20070101
  5. FORTEO [Suspect]
     Indication: OSTEOPOROSIS
     Dosage: 20 UG, DAILY (1/D)
     Route: 058
     Dates: start: 20101116, end: 20101122

REACTIONS (3)
  - FALL [None]
  - LOSS OF CONSCIOUSNESS [None]
  - DIZZINESS [None]
